FAERS Safety Report 5109028-X (Version None)
Quarter: 2006Q3

REPORT INFORMATION
  Report Type: 
  Country: None (occurrence: None)
  Receive Date: 20060920
  Receipt Date: 20060914
  Transmission Date: 20061208
  Serious: Yes (Hospitalization)
  Sender: FDA-Public Use
  Company Number: BE-BRISTOL-MYERS SQUIBB COMPANY-13508981

PATIENT
  Age: 58 Year
  Sex: Female
  Weight: 54 kg

DRUGS (5)
  1. CISPLATIN [Suspect]
     Indication: ENDOMETRIAL CANCER
     Dates: start: 20051129, end: 20051220
  2. PACLITAXEL [Suspect]
     Indication: ENDOMETRIAL CANCER
     Dates: start: 20051129, end: 20051220
  3. ADRIAMYCIN PFS [Suspect]
     Indication: ENDOMETRIAL CANCER
     Dates: start: 20051129, end: 20051220
  4. ZOLPIDEM TARTRATE [Concomitant]
  5. MOVICOL [Concomitant]

REACTIONS (1)
  - FEBRILE NEUTROPENIA [None]
